FAERS Safety Report 23046924 (Version 3)
Quarter: 2023Q4

REPORT INFORMATION
  Report Type: Spontaneous
  Country: JP (occurrence: JP)
  Receive Date: 20231009
  Receipt Date: 20231117
  Transmission Date: 20240110
  Serious: Yes (Hospitalization, Other)
  Sender: FDA-Public Use
  Company Number: JP-BAYER-2023A140088

PATIENT
  Age: 81 Year
  Sex: Male

DRUGS (2)
  1. VERICIGUAT HYDROCHLORIDE [Suspect]
     Active Substance: VERICIGUAT HYDROCHLORIDE
     Indication: Ischaemic cardiomyopathy
     Dosage: 2.5 MILLIGRAM
     Dates: start: 20220420, end: 202308
  2. VERICIGUAT HYDROCHLORIDE [Suspect]
     Active Substance: VERICIGUAT HYDROCHLORIDE
     Indication: Cardiac failure

REACTIONS (4)
  - Gastrointestinal haemorrhage [Recovering/Resolving]
  - Congestive hepatopathy [Unknown]
  - Blood loss anaemia [Unknown]
  - Mucosal disorder [Recovering/Resolving]

NARRATIVE: CASE EVENT DATE: 20230428
